FAERS Safety Report 4881472-5 (Version None)
Quarter: 2005Q4

REPORT INFORMATION
  Report Type: 
  Country: None (occurrence: None)
  Receive Date: 20051201
  Receipt Date: 20050727
  Transmission Date: 20060501
  Serious: No
  Sender: FDA-Public Use
  Company Number: 2005PV000648

PATIENT
  Age: 77 Year
  Sex: Male
  Weight: 79.3795 kg

DRUGS (10)
  1. BYETTA [Suspect]
     Indication: DIABETES MELLITUS NON-INSULIN-DEPENDENT
     Dosage: 5 MCG;BID;SC
     Route: 058
     Dates: start: 20050726, end: 20050820
  2. PLAVIX [Concomitant]
  3. GLIPIZIDE [Concomitant]
  4. GLUCOVANCE [Concomitant]
  5. DISOPYRAMIDE [Concomitant]
  6. LIPITOR [Concomitant]
  7. ACTOS [Concomitant]
  8. ASPIRIN [Concomitant]
  9. QUINAPRIL [Concomitant]
  10. LANOXIN [Concomitant]

REACTIONS (3)
  - BLOOD GLUCOSE INCREASED [None]
  - DRUG INEFFECTIVE [None]
  - NERVOUSNESS [None]
